FAERS Safety Report 4555712-6 (Version None)
Quarter: 2005Q1

REPORT INFORMATION
  Report Type: 
  Country: None (occurrence: None)
  Receive Date: 20050118
  Receipt Date: 20040112
  Transmission Date: 20050727
  Serious: No
  Sender: FDA-Public Use
  Company Number: A001-002-005941

PATIENT
  Age: 89 Year
  Sex: Female

DRUGS (6)
  1. ARICEPT [Suspect]
     Indication: DEMENTIA
     Dosage: 10 MG, 1 IN 1 D, ORAL
     Route: 048
     Dates: start: 20021001
  2. NEURONTIN [Suspect]
     Dosage: SEE IMAGE
     Dates: start: 20040115, end: 20040101
  3. NEURONTIN [Suspect]
     Dosage: SEE IMAGE
     Dates: start: 20040101
  4. MEMANTINE (MEMANTINE) [Suspect]
     Indication: COGNITIVE DISORDER
     Dosage: ORAL
     Route: 048
     Dates: start: 20031201, end: 20031201
  5. ANTIHYPERTENSIVE (ANTIHYPERTENSIVE (ANTIHYPERTENSIVE) [Concomitant]
  6. AGGRENOX [Concomitant]

REACTIONS (4)
  - CONDITION AGGRAVATED [None]
  - CONVULSION [None]
  - DIZZINESS [None]
  - FATIGUE [None]
